FAERS Safety Report 8778077 (Version 3)
Quarter: 2012Q4

REPORT INFORMATION
  Report Type: 
  Country: CA (occurrence: CA)
  Receive Date: 20120911
  Receipt Date: 20121105
  Transmission Date: 20130627
  Serious: Yes (Other)
  Sender: FDA-Public Use
  Company Number: CA-JNJFOC-20120903222

PATIENT
  Sex: Female

DRUGS (5)
  1. XARELTO [Suspect]
     Indication: CEREBROVASCULAR ACCIDENT PROPHYLAXIS
     Route: 048
     Dates: start: 201205
  2. XARELTO [Suspect]
     Indication: ATRIAL FIBRILLATION
     Route: 048
     Dates: start: 201205
  3. CELEBREX [Concomitant]
     Route: 065
  4. CRESTOR [Concomitant]
     Route: 065
  5. BISOPROLOL [Concomitant]
     Route: 065

REACTIONS (2)
  - Colorectal cancer [Unknown]
  - Rectal haemorrhage [Recovered/Resolved with Sequelae]
